FAERS Safety Report 20574327 (Version 1)
Quarter: 2022Q1

REPORT INFORMATION
  Report Type: Spontaneous
  Country: US (occurrence: None)
  Receive Date: 20220309
  Receipt Date: 20220309
  Transmission Date: 20220423
  Serious: No
  Sender: FDA-Public Use
  Company Number: US-Merck Healthcare KGaA-9300136

PATIENT
  Age: 79 Year
  Sex: Female

DRUGS (1)
  1. TEPMETKO [Suspect]
     Active Substance: TEPOTINIB HYDROCHLORIDE
     Indication: Product used for unknown indication
     Dates: start: 20211231

REACTIONS (4)
  - Tongue fungal infection [Unknown]
  - pH body fluid abnormal [Unknown]
  - Illness [Unknown]
  - Feeling abnormal [Unknown]
